FAERS Safety Report 8189828-2 (Version None)
Quarter: 2012Q1

REPORT INFORMATION
  Report Type: 
  Country: None (occurrence: None)
  Receive Date: 20120307
  Receipt Date: 20110826
  Transmission Date: 20120608
  Serious: No
  Sender: FDA-Public Use
  Company Number: US-GLAXOSMITHKLINE-A0943403A

PATIENT
  Sex: Female

DRUGS (2)
  1. ROPINIROLE [Suspect]
     Indication: RESTLESS LEGS SYNDROME
     Route: 065
  2. GABAPENTIN [Suspect]
     Indication: RESTLESS LEGS SYNDROME
     Route: 065

REACTIONS (5)
  - INSOMNIA [None]
  - DRUG EFFECT DECREASED [None]
  - PERFORMANCE STATUS DECREASED [None]
  - MIDDLE INSOMNIA [None]
  - ADVERSE DRUG REACTION [None]
